FAERS Safety Report 7039704-3 (Version None)
Quarter: 2010Q4

REPORT INFORMATION
  Report Type: 
  Country: None (occurrence: None)
  Receive Date: 20101012
  Receipt Date: 20101007
  Transmission Date: 20110411
  Serious: Yes (Death, Hospitalization, Other)
  Sender: FDA-Public Use
  Company Number: JP-BAYER-200912840BYL

PATIENT
  Age: 33 Year
  Sex: Male
  Weight: 48 kg

DRUGS (22)
  1. NEXAVAR [Suspect]
     Indication: HEPATIC NEOPLASM MALIGNANT
     Dosage: UNIT DOSE: 200 MG
     Route: 048
     Dates: start: 20091106, end: 20100324
  2. NEXAVAR [Suspect]
     Dosage: 800MG/DAY AND 400MG/DAY
     Route: 048
     Dates: start: 20090902, end: 20091025
  3. NEXAVAR [Suspect]
     Dosage: UNIT DOSE: 200 MG
     Route: 048
     Dates: start: 20090824, end: 20090902
  4. NEXAVAR [Suspect]
     Dosage: TOTAL DAILY DOSE: 800 MG  UNIT DOSE: 200 MG
     Route: 048
     Dates: start: 20090724, end: 20090731
  5. PACIF [Concomitant]
     Route: 048
     Dates: start: 20090807, end: 20090914
  6. MEILAX [Concomitant]
     Dosage: SINCE BEFORE ADMINISTRATION
     Route: 048
  7. NAIXAN [Concomitant]
     Route: 048
     Dates: start: 20090807, end: 20091224
  8. NAIXAN [Concomitant]
     Route: 048
     Dates: start: 20091225
  9. NAIXAN [Concomitant]
     Dosage: SINCE BEFORE ADMINISTRATION
     Route: 048
  10. MYSLEE [Concomitant]
     Dosage: SINCE BEFORE ADMINISTRATION
     Route: 048
  11. MAGNESIUM OXIDE [Concomitant]
     Dosage: SINCE BEFORE ADMINISTRATION
     Route: 048
  12. OPSO [Concomitant]
     Dosage: SINCE BEFORE ADMINISTRATION
     Route: 048
  13. HIRUDOID [Concomitant]
     Indication: PROPHYLAXIS
     Route: 061
     Dates: start: 20090724
  14. KADIAN [Concomitant]
     Route: 048
     Dates: start: 20090914, end: 20090917
  15. KADIAN [Concomitant]
     Route: 048
     Dates: start: 20091120, end: 20091210
  16. KADIAN [Concomitant]
     Route: 048
     Dates: start: 20091210
  17. KADIAN [Concomitant]
     Route: 048
     Dates: start: 20090917, end: 20091119
  18. GABAPEN [Concomitant]
     Route: 048
     Dates: start: 20090917
  19. GABAPEN [Concomitant]
     Route: 048
     Dates: start: 20091210
  20. OXYCONTIN [Concomitant]
     Route: 048
     Dates: start: 20091210
  21. DUROTEP [Concomitant]
     Route: 062
     Dates: start: 20091210
  22. TAKEPRON [Concomitant]
     Route: 048
     Dates: start: 20091225

REACTIONS (6)
  - ALOPECIA [None]
  - C-REACTIVE PROTEIN INCREASED [None]
  - HEPATIC FUNCTION ABNORMAL [None]
  - HEPATIC NEOPLASM MALIGNANT [None]
  - MELAENA [None]
  - TUMOUR LYSIS SYNDROME [None]
